FAERS Safety Report 4289424-3 (Version None)
Quarter: 2004Q1

REPORT INFORMATION
  Report Type: 
  Country: None (occurrence: None)
  Receive Date: 20040206
  Receipt Date: 20040206
  Transmission Date: 20041129
  Serious: Yes (Other)
  Sender: FDA-Public Use
  Company Number: None

PATIENT
  Sex: Male
  Weight: 81.6475 kg

DRUGS (1)
  1. ZOLOFT [Suspect]

REACTIONS (5)
  - ANGER [None]
  - DELUSION [None]
  - HOSTILITY [None]
  - IMPRISONMENT [None]
  - PARANOIA [None]
